FAERS Safety Report 23289988 (Version 1)
Quarter: 2023Q4

REPORT INFORMATION
  Report Type: Spontaneous
  Country: GB (occurrence: GB)
  Receive Date: 20231212
  Receipt Date: 20231212
  Transmission Date: 20240110
  Serious: Yes (Other)
  Sender: FDA-Public Use
  Company Number: None

PATIENT

DRUGS (1)
  1. XARELTO [Suspect]
     Active Substance: RIVAROXABAN
     Indication: Product used for unknown indication
     Dosage: UNK
     Route: 048
     Dates: start: 20231122

REACTIONS (5)
  - Deep vein thrombosis [Unknown]
  - Internal haemorrhage [Unknown]
  - Nausea [Unknown]
  - Abdominal pain lower [Unknown]
  - Hyperhidrosis [Unknown]
